FAERS Safety Report 16404742 (Version 1)
Quarter: 2019Q2

REPORT INFORMATION
  Report Type: Spontaneous
  Country: FR (occurrence: FR)
  Receive Date: 20190607
  Receipt Date: 20190607
  Transmission Date: 20190711
  Serious: Yes (Hospitalization)
  Sender: FDA-Public Use
  Company Number: FR-TEVA-2019-FR-1059496

PATIENT
  Age: 52 Year
  Sex: Male

DRUGS (6)
  1. SUBUTEX [Suspect]
     Active Substance: BUPRENORPHINE HYDROCHLORIDE
     Route: 065
     Dates: start: 2019
  2. PREGABALINE [Suspect]
     Active Substance: PREGABALIN
     Route: 065
     Dates: start: 2019
  3. ALPRAZOLAM. [Suspect]
     Active Substance: ALPRAZOLAM
     Route: 065
     Dates: start: 2019
  4. NORSET [Suspect]
     Active Substance: MIRTAZAPINE
     Route: 065
     Dates: start: 2019
  5. LUMIRELAX (METHOCARBAMOL\METHYL NICOTINATE) [Suspect]
     Active Substance: METHOCARBAMOL\METHYL NICOTINATE
     Route: 065
     Dates: start: 2019
  6. THERALENE [Suspect]
     Active Substance: TRIMEPRAZINE
     Route: 065
     Dates: start: 2019

REACTIONS (7)
  - Septic shock [Recovered/Resolved]
  - Substance abuse [Recovering/Resolving]
  - Coma [Recovered/Resolved]
  - Multiple organ dysfunction syndrome [Recovered/Resolved]
  - Toxic encephalopathy [Recovering/Resolving]
  - Drug dependence [Recovering/Resolving]
  - Intentional product misuse [Recovering/Resolving]

NARRATIVE: CASE EVENT DATE: 2019
